FAERS Safety Report 22198536 (Version 2)
Quarter: 2023Q2

REPORT INFORMATION
  Report Type: Other
  Country: US (occurrence: None)
  Receive Date: 20230411
  Receipt Date: 20230419
  Transmission Date: 20230722
  Serious: Yes (Hospitalization, Other)
  Sender: FDA-Public Use
  Company Number: US-ROCHE-1429372

PATIENT
  Age: 56 Year
  Sex: Female
  Weight: 99.880 kg

DRUGS (26)
  1. RITUXAN [Suspect]
     Active Substance: RITUXIMAB
     Indication: Optic neuritis
     Dosage: DAY 1 AND DAY 15 EVERY 6 MONTHS, DATE OF DOSE: 23/AUG/2011, 06/SEP/2011, 09/MAR/2012, 26/MAR/2012, 0
     Route: 042
     Dates: start: 2009
  2. RITUXAN [Suspect]
     Active Substance: RITUXIMAB
     Indication: Primary progressive multiple sclerosis
     Dosage: ONCE
     Route: 042
     Dates: start: 20130506, end: 20130506
  3. RITUXAN [Suspect]
     Active Substance: RITUXIMAB
     Route: 042
  4. RITUXAN [Suspect]
     Active Substance: RITUXIMAB
     Route: 042
     Dates: start: 200502, end: 2014
  5. METFORMIN [Suspect]
     Active Substance: METFORMIN HYDROCHLORIDE
     Indication: Diabetes mellitus
     Route: 048
     Dates: start: 2003, end: 202207
  6. METFORMIN [Suspect]
     Active Substance: METFORMIN HYDROCHLORIDE
     Dosage: INCREASED DOSAGE. STOPPED DUE TO DIARRHEA. PUT ON GLIMEPERIDE
     Route: 048
     Dates: start: 202207, end: 202207
  7. SULFASALAZINE [Suspect]
     Active Substance: SULFASALAZINE
     Indication: Product used for unknown indication
     Route: 048
  8. OCREVUS [Suspect]
     Active Substance: OCRELIZUMAB
     Indication: Primary progressive multiple sclerosis
     Route: 042
     Dates: start: 201705
  9. LISINOPRIL [Concomitant]
     Active Substance: LISINOPRIL
  10. XOPENEX HFA [Concomitant]
     Active Substance: LEVALBUTEROL TARTRATE
     Dosage: AS DIRECTED
     Route: 055
  11. VITAMIN B COMPLEX [Concomitant]
     Active Substance: CYANOCOBALAMIN\DEXPANTHENOL\NIACINAMIDE\PYRIDOXINE HYDROCHLORIDE\RIBOFLAVIN 5^-PHOSPHATE SODIUM\THIA
     Dosage: TAKE 1 TABLET DAILY
  12. GLUCOPHAGE XR [Concomitant]
     Active Substance: METFORMIN HYDROCHLORIDE
  13. XYZAL [Concomitant]
     Active Substance: LEVOCETIRIZINE DIHYDROCHLORIDE
  14. XYZAL [Concomitant]
     Active Substance: LEVOCETIRIZINE DIHYDROCHLORIDE
     Dosage: TAKE 5 MG BY MOUTH EVERY EVENING
  15. FLOVENT HFA [Concomitant]
     Active Substance: FLUTICASONE PROPIONATE
  16. LIORESAL [Concomitant]
     Active Substance: BACLOFEN
  17. MEPERIDINE HYDROCHLORIDE [Concomitant]
     Active Substance: MEPERIDINE HYDROCHLORIDE
  18. PREMARIN [Concomitant]
     Active Substance: ESTROGENS, CONJUGATED
  19. LORTAB [Concomitant]
     Active Substance: ACETAMINOPHEN\HYDROCODONE BITARTRATE
     Dosage: 5-500 MG, AS DIRECTED, AS NEEDED
  20. TYLENOL [Concomitant]
     Active Substance: ACETAMINOPHEN
     Dates: start: 20110823
  21. TYLENOL [Concomitant]
     Active Substance: ACETAMINOPHEN
     Dosage: DATE OF DOSE: 6/5/2013,
     Route: 048
     Dates: start: 20120309
  22. BENADRYL [Concomitant]
     Active Substance: DIPHENHYDRAMINE HYDROCHLORIDE
     Dates: start: 20110823
  23. BENADRYL [Concomitant]
     Active Substance: DIPHENHYDRAMINE HYDROCHLORIDE
     Route: 048
     Dates: start: 20120309
  24. SOLU-MEDROL [Concomitant]
     Active Substance: METHYLPREDNISOLONE SODIUM SUCCINATE
     Dosage: DATE OF DOSE: 23/AUG/2011, 06/SEP/2011, 09/MAR/2012, 26/MAR/2012, 02/OCT/2012, 15/OCT/2012, 22/APR/2
     Route: 040
  25. ALVESCO [Concomitant]
     Active Substance: CICLESONIDE
     Dosage: INHALE 1 PUFF INTO THE LUNGS 2 TIMES DAILY
     Route: 055
  26. GLUCOPHAGE [Concomitant]
     Active Substance: METFORMIN HYDROCHLORIDE
     Dosage: TAKE 1 TABLET DAILY

REACTIONS (22)
  - Fatigue [Unknown]
  - Muscle spasticity [Unknown]
  - Pain [Unknown]
  - Back pain [Unknown]
  - Arthralgia [Unknown]
  - Hypoaesthesia [Unknown]
  - Constipation [Unknown]
  - Sinusitis [Recovered/Resolved]
  - Palpitations [Unknown]
  - Cognitive disorder [Unknown]
  - Immunodeficiency [Unknown]
  - Multiple sclerosis [Unknown]
  - Off label use [Unknown]
  - Precancerous condition [Recovered/Resolved]
  - Diabetes mellitus [Recovered/Resolved]
  - Insomnia [Not Recovered/Not Resolved]
  - Diarrhoea [Recovered/Resolved]
  - Nausea [Recovered/Resolved]
  - Cellulitis [Recovered/Resolved]
  - Periorbital cellulitis [Recovered/Resolved]
  - Drug hypersensitivity [Not Recovered/Not Resolved]
  - Pneumonia [Recovered/Resolved]

NARRATIVE: CASE EVENT DATE: 20091027
